FAERS Safety Report 7785644-1 (Version None)
Quarter: 2011Q3

REPORT INFORMATION
  Report Type: 
  Country: None (occurrence: None)
  Receive Date: 20110929
  Receipt Date: 20110929
  Transmission Date: 20111222
  Serious: Yes (Other)
  Sender: FDA-Public Use
  Company Number: None

PATIENT
  Age: 42 Year
  Sex: Female
  Weight: 136.07 kg

DRUGS (1)
  1. MEDROXYPROGESTERONE ACETATE [Suspect]
     Indication: MENORRHAGIA
     Dosage: 20MG
     Route: 048
     Dates: start: 20110902, end: 20110916

REACTIONS (5)
  - FEELING ABNORMAL [None]
  - OEDEMA PERIPHERAL [None]
  - DYSPNOEA [None]
  - JOINT SWELLING [None]
  - QUALITY OF LIFE DECREASED [None]
